FAERS Safety Report 6233576-2 (Version None)
Quarter: 2009Q2

REPORT INFORMATION
  Report Type: 
  Country: None (occurrence: None)
  Receive Date: 20090617
  Receipt Date: 20090611
  Transmission Date: 20091009
  Serious: Yes (Hospitalization)
  Sender: FDA-Public Use
  Company Number: GB-TEVA-198108ISR

PATIENT
  Age: 55 Year
  Sex: Male

DRUGS (1)
  1. LIDOCAINE [Suspect]
     Indication: DRUG USE FOR UNKNOWN INDICATION
     Route: 061

REACTIONS (8)
  - ABDOMINAL PAIN UPPER [None]
  - DIZZINESS [None]
  - ERUCTATION [None]
  - HEADACHE [None]
  - NAUSEA [None]
  - NYSTAGMUS [None]
  - RETCHING [None]
  - TENDERNESS [None]
